FAERS Safety Report 9246212 (Version 1)
Quarter: 2013Q2

REPORT INFORMATION
  Report Type: Spontaneous
  Country: BR (occurrence: BR)
  Receive Date: 20130422
  Receipt Date: 20130422
  Transmission Date: 20140414
  Serious: Yes (Hospitalization)
  Sender: FDA-Public Use
  Company Number: BR-ELI_LILLY_AND_COMPANY-BR201304005361

PATIENT
  Age: 66 Year
  Sex: Male
  Weight: 70 kg

DRUGS (1)
  1. EFFIENT [Suspect]
     Indication: ANTIPLATELET THERAPY
     Dosage: 5 MG, QD
     Route: 048
     Dates: start: 20130402, end: 20130404

REACTIONS (1)
  - Diabetes mellitus [Recovered/Resolved]
